FAERS Safety Report 16200986 (Version 1)
Quarter: 2019Q2

REPORT INFORMATION
  Report Type: Spontaneous
  Country: US (occurrence: US)
  Receive Date: 20190416
  Receipt Date: 20190416
  Transmission Date: 20190711
  Serious: No
  Sender: FDA-Public Use
  Company Number: US-BION-007464

PATIENT
  Age: 83 Year
  Sex: Male

DRUGS (1)
  1. NAPROXEN SODIUM. [Suspect]
     Active Substance: NAPROXEN SODIUM
     Indication: HEADACHE
     Dosage: 1 EVERY 12 HOURS
     Route: 048
     Dates: start: 20180928, end: 20180929

REACTIONS (1)
  - Drug ineffective [Not Recovered/Not Resolved]
